FAERS Safety Report 6230626-4 (Version None)
Quarter: 2009Q2

REPORT INFORMATION
  Report Type: 
  Country: None (occurrence: None)
  Receive Date: 20090615
  Receipt Date: 20090514
  Transmission Date: 20091009
  Serious: No
  Sender: FDA-Public Use
  Company Number: US-ABBOTT-09P-163-0573644-00

PATIENT
  Sex: Female
  Weight: 53.572 kg

DRUGS (5)
  1. TRILIPIX [Suspect]
     Indication: BLOOD TRIGLYCERIDES INCREASED
     Route: 048
     Dates: start: 20090301, end: 20090401
  2. TRILIPIX [Suspect]
     Dates: start: 20090401, end: 20090512
  3. PREMPRO [Concomitant]
     Indication: HORMONE REPLACEMENT THERAPY
     Dosage: 0.625/2.5
     Route: 048
  4. ASPIRIN [Concomitant]
     Indication: CARDIAC DISORDER
     Route: 048
     Dates: end: 20090401
  5. ZANTAC [Concomitant]
     Indication: GASTROOESOPHAGEAL REFLUX DISEASE
     Route: 048

REACTIONS (1)
  - VAGINAL HAEMORRHAGE [None]
